FAERS Safety Report 11222147 (Version 2)
Quarter: 2015Q3

REPORT INFORMATION
  Report Type: Report from Study
  Country: AR (occurrence: AR)
  Receive Date: 20150626
  Receipt Date: 20150709
  Transmission Date: 20151125
  Serious: No
  Sender: FDA-Public Use
  Company Number: PHHY2015AR077341

PATIENT
  Sex: Female

DRUGS (2)
  1. EXJADE [Suspect]
     Active Substance: DEFERASIROX
     Indication: IRON OVERLOAD
     Dosage: 250 MG, QOD
     Route: 065
     Dates: start: 2012
  2. EXJADE [Suspect]
     Active Substance: DEFERASIROX
     Dosage: 500 MG, QOD
     Route: 065
     Dates: start: 2012

REACTIONS (3)
  - Pharyngeal inflammation [Recovered/Resolved]
  - Ear infection [Recovered/Resolved]
  - Conjunctivitis [Recovered/Resolved]
